FAERS Safety Report 6369013-7 (Version None)
Quarter: 2009Q3

REPORT INFORMATION
  Report Type: 
  Country: None (occurrence: None)
  Receive Date: 20090916
  Receipt Date: 20090908
  Transmission Date: 20100115
  Serious: Yes (Other)
  Sender: FDA-Public Use
  Company Number: ADR19482009

PATIENT
  Age: 65 Year
  Sex: Female

DRUGS (6)
  1. SERTRALINE HCL [Suspect]
     Indication: DEPRESSION
     Dosage: 25MG ORAL
     Route: 048
  2. MODAFINIL [Concomitant]
  3. DANTROLENE SODIUM [Concomitant]
  4. LANSOPRAZOLE [Concomitant]
  5. RAMIPRIL [Concomitant]
  6. SINEMET [Concomitant]

REACTIONS (3)
  - BLOOD SODIUM INCREASED [None]
  - HYPERTENSION [None]
  - SOMNOLENCE [None]
